FAERS Safety Report 11969389 (Version 1)
Quarter: 2016Q1

REPORT INFORMATION
  Report Type: Spontaneous
  Country: US (occurrence: None)
  Receive Date: 20160119
  Receipt Date: 20160119
  Transmission Date: 20160526
  Serious: Yes (Hospitalization)
  Sender: FDA-Public Use
  Company Number: 2015-US-006370

PATIENT
  Age: 18 Year
  Sex: Male

DRUGS (4)
  1. ENOXAPARIN [Concomitant]
     Active Substance: ENOXAPARIN
  2. BACTRIM DS (SULFAMETHOXAZOLE, TRIMETHOPRIM) [Concomitant]
  3. ERWINAZE [Suspect]
     Active Substance: ASPARAGINASE ERWINIA CHRYSANTHEMI
     Indication: LEUKAEMIA
     Route: 042
     Dates: start: 20150415, end: 20150427
  4. RIFAXIMIN [Concomitant]
     Active Substance: RIFAXIMIN

REACTIONS (4)
  - Coagulopathy [None]
  - Nausea [None]
  - Hypersensitivity [None]
  - Vomiting [None]

NARRATIVE: CASE EVENT DATE: 20150427
